FAERS Safety Report 16543471 (Version 4)
Quarter: 2020Q3

REPORT INFORMATION
  Report Type: Spontaneous
  Country: PL (occurrence: PL)
  Receive Date: 20190709
  Receipt Date: 20200720
  Transmission Date: 20201102
  Serious: Yes (Death, Hospitalization, Other)
  Sender: FDA-Public Use
  Company Number: PL-SUN PHARMACEUTICAL INDUSTRIES LTD-2019R1-213054

PATIENT
  Age: 68 Year
  Sex: Male

DRUGS (8)
  1. AMOXICILLIN/CLAVULANIC ACID [Suspect]
     Active Substance: AMOXICILLIN\CLAVULANIC ACID
     Indication: RASH ERYTHEMATOUS
     Route: 065
  2. COLCHICINE. [Suspect]
     Active Substance: COLCHICINE
     Indication: RHEUMATOID ARTHRITIS
     Dosage: 0.5 MILLIGRAM, DAILY
     Route: 065
  3. METHOTREXATE. [Suspect]
     Active Substance: METHOTREXATE
     Indication: RHEUMATOID ARTHRITIS
     Dosage: 20 MILLIGRAM, WEEKLY
     Route: 065
  4. PREDNISONE. [Suspect]
     Active Substance: PREDNISONE
     Indication: RHEUMATOID ARTHRITIS
     Dosage: 60 MILLIGRAM, DAILY
     Route: 065
  5. PREDNISONE. [Suspect]
     Active Substance: PREDNISONE
     Dosage: 45 MILLIGRAM, DAILY
     Route: 065
  6. METHYLPREDNISOLONE. [Suspect]
     Active Substance: METHYLPREDNISOLONE
     Indication: RHEUMATOID ARTHRITIS
     Dosage: 500 MG,3  OF PULSES
     Route: 042
  7. MEROPENEM. [Suspect]
     Active Substance: MEROPENEM
     Indication: PRODUCT USED FOR UNKNOWN INDICATION
     Dosage: 3 GRAM, DAILY
     Route: 065
  8. COLCHICINE. [Suspect]
     Active Substance: COLCHICINE
     Dosage: 1 MILLIGRAM, DAILY
     Route: 065

REACTIONS (6)
  - Drug ineffective [Fatal]
  - Cardiac arrest [Fatal]
  - Enterobacter infection [Unknown]
  - Sepsis [Fatal]
  - Pulseless electrical activity [Fatal]
  - Respiratory failure [Unknown]
